FAERS Safety Report 4825610-9 (Version None)
Quarter: 2005Q4

REPORT INFORMATION
  Report Type: 
  Country: None (occurrence: None)
  Receive Date: 20051111
  Receipt Date: 20051017
  Transmission Date: 20060501
  Serious: No
  Sender: FDA-Public Use
  Company Number: US-GLAXOSMITHKLINE-A0578456A

PATIENT
  Age: 78 Year
  Sex: Male

DRUGS (4)
  1. AVODART [Suspect]
     Indication: BENIGN PROSTATIC HYPERPLASIA
     Dosage: 1CAPL PER DAY
     Route: 048
     Dates: start: 20050815
  2. FLOMAX [Suspect]
  3. SAW PALMETTO [Concomitant]
  4. COUMADIN [Concomitant]

REACTIONS (2)
  - BLADDER DISCOMFORT [None]
  - POLLAKIURIA [None]
